FAERS Safety Report 7912447-7 (Version None)
Quarter: 2011Q4

REPORT INFORMATION
  Report Type: 
  Country: None (occurrence: None)
  Receive Date: 20111114
  Receipt Date: 20111109
  Transmission Date: 20120403
  Serious: Yes (Other)
  Sender: FDA-Public Use
  Company Number: CA-PFIZER INC-2011274754

PATIENT
  Age: 55 Year
  Sex: Female

DRUGS (4)
  1. DILANTIN [Suspect]
     Indication: EPILEPSY
     Dosage: 100 MG, 2X/DAY
     Dates: start: 19740101, end: 20111001
  2. NEXIUM [Concomitant]
     Dosage: UNK
  3. AZITHROMYCIN [Concomitant]
     Dosage: UNK
  4. AMOXIL [Concomitant]
     Dosage: UNK

REACTIONS (5)
  - LYME DISEASE [None]
  - COORDINATION ABNORMAL [None]
  - HYPERAESTHESIA [None]
  - PAROSMIA [None]
  - MUSCULAR WEAKNESS [None]
